FAERS Safety Report 4695150-9 (Version None)
Quarter: 2005Q2

REPORT INFORMATION
  Report Type: 
  Country: None (occurrence: None)
  Receive Date: 20050617
  Receipt Date: 20050613
  Transmission Date: 20051028
  Serious: Yes (Death, Disabling)
  Sender: FDA-Public Use
  Company Number: 167-20785-05060202

PATIENT
  Age: 75 Year
  Sex: Female

DRUGS (1)
  1. THALIDOMIDE (THALIDOMIDE) [Suspect]
     Indication: MULTIPLE MYELOMA

REACTIONS (8)
  - ANTERIOR CHAMBER DISORDER [None]
  - CONJUNCTIVAL HYPERAEMIA [None]
  - CORNEAL DEPOSITS [None]
  - DISEASE PROGRESSION [None]
  - HYPOPYON [None]
  - IRIS ADHESIONS [None]
  - VISUAL ACUITY REDUCED [None]
  - VITRITIS [None]
